FAERS Safety Report 9394610 (Version 3)
Quarter: 2013Q3

REPORT INFORMATION
  Report Type: Spontaneous
  Country: US (occurrence: US)
  Receive Date: 20130711
  Receipt Date: 20130828
  Transmission Date: 20140515
  Serious: Yes (Hospitalization, Other)
  Sender: FDA-Public Use
  Company Number: US-JNJFOC-20130702721

PATIENT
  Age: 27 Year
  Sex: Male
  Weight: 58.51 kg

DRUGS (15)
  1. REMICADE [Suspect]
     Indication: CROHN^S DISEASE
     Route: 042
     Dates: start: 20120730
  2. REMICADE [Suspect]
     Indication: CROHN^S DISEASE
     Dosage: THE PATIENT APPROXIMATELY RECEIVED A TOTAL OF 9 INFUSIONS
     Route: 042
     Dates: start: 20130426, end: 20130426
  3. HUMIRA [Suspect]
     Indication: PRODUCT USED FOR UNKNOWN INDICATION
     Route: 065
  4. AMITRIPTYLINE [Concomitant]
     Indication: INSOMNIA
     Route: 048
     Dates: start: 201210
  5. CHOLECALCIFEROL [Concomitant]
     Route: 048
     Dates: start: 201204
  6. VITAMIN B12 [Concomitant]
     Route: 050
  7. ENTOCORT [Concomitant]
     Route: 065
     Dates: start: 20130611
  8. ISONIAZID [Concomitant]
     Route: 065
     Dates: start: 20130611
  9. LIALDA [Concomitant]
     Indication: INFLAMMATORY BOWEL DISEASE
     Route: 065
     Dates: start: 20130611
  10. LIALDA [Concomitant]
     Indication: INFLAMMATORY BOWEL DISEASE
     Route: 065
  11. NICOTINE PATCH [Concomitant]
     Route: 062
  12. NICOTINE PATCH [Concomitant]
     Route: 062
  13. ZANTAC [Concomitant]
     Indication: GASTRIC DISORDER
     Route: 065
  14. ZANTAC [Concomitant]
     Indication: GASTRIC DISORDER
     Route: 065
     Dates: start: 201201
  15. FENERGAN [Concomitant]
     Indication: NAUSEA
     Route: 065
     Dates: start: 201001

REACTIONS (1)
  - Pulmonary tuberculosis [Recovering/Resolving]
